FAERS Safety Report 14849903 (Version 1)
Quarter: 2018Q2

REPORT INFORMATION
  Report Type: Spontaneous
  Country: US (occurrence: US)
  Receive Date: 20180504
  Receipt Date: 20180504
  Transmission Date: 20180711
  Serious: Yes (Hospitalization, Other)
  Sender: FDA-Public Use
  Company Number: US-B.I. PHARMACEUTICALS,INC./RIDGEFIELD-2018-BI-023574

PATIENT
  Sex: Male

DRUGS (5)
  1. CATAPRES-TTS [Suspect]
     Active Substance: CLONIDINE
     Indication: ANXIETY
     Dosage: FORMULATION: PATCH?DOSE: ONCE EVERY FRIDAY
     Route: 065
  2. CATAPRES-TTS [Suspect]
     Active Substance: CLONIDINE
     Indication: ABNORMAL BEHAVIOUR
  3. DEPAKOTE [Concomitant]
     Active Substance: DIVALPROEX SODIUM
     Indication: SEIZURE
     Route: 065
  4. LAMOTRIGINE. [Concomitant]
     Active Substance: LAMOTRIGINE
     Indication: SEIZURE
     Route: 065
  5. PRILOSEC [Concomitant]
     Active Substance: OMEPRAZOLE MAGNESIUM
     Indication: GASTROOESOPHAGEAL REFLUX DISEASE
     Route: 065

REACTIONS (4)
  - Scoliosis [Unknown]
  - Spinal cord injury [Unknown]
  - Off label use [Unknown]
  - Angelman^s syndrome [Unknown]

NARRATIVE: CASE EVENT DATE: 2002
